FAERS Safety Report 4666668-X (Version None)
Quarter: 2005Q2

REPORT INFORMATION
  Report Type: 
  Country: None (occurrence: None)
  Receive Date: 20050518
  Receipt Date: 20050505
  Transmission Date: 20051028
  Serious: Yes (Other)
  Sender: FDA-Public Use
  Company Number: HQWYE204621MAR05

PATIENT
  Age: 52 Year
  Sex: Female

DRUGS (15)
  1. RAPAMUNE [Suspect]
     Indication: PROPHYLAXIS AGAINST TRANSPLANT REJECTION
     Dosage: 7 MG 1X PER 1 DAY, ORAL
     Route: 048
     Dates: start: 20050119, end: 20050101
  2. RAPAMUNE [Suspect]
     Dosage: 8 MG 1X PER 1 DAY, ORAL
     Route: 048
     Dates: start: 20050101
  3. MYCOPHENOLATE MOFETIL                (MYCOPHENOLATE MOFETIL,) [Suspect]
     Dosage: ORAL
     Route: 048
     Dates: end: 20050315
  4. MYCOPHENOLATE MOFETIL (MYCOPHENOLATE MOFETIL,) [Suspect]
     Dosage: 500 MG 1X PER 1 DAY, ORAL
     Route: 048
     Dates: start: 20050316, end: 20050316
  5. MYCOPHENOLATE MOFETIL (MYCOPHENOLATE MOFETIL,) [Suspect]
     Dosage: 300 MG 2X PER 1 DAY, ORAL
     Route: 048
     Dates: start: 20050317, end: 20050317
  6. MYCOPHENOLATE MOFETIL (MYCOPHENOLATE MOFETIL,) [Suspect]
     Dosage: 500 MG 3X PER 1 DAY, ORAL
     Route: 048
     Dates: start: 20050318, end: 20050318
  7. MYCOPHENOLATE MOFETIL            (MYCOPHENOLATE MOFETIL,) [Suspect]
     Dosage: 500 MG 4X PER 1 DAY, ORAL
     Route: 048
     Dates: start: 20050319
  8. PREDNISONE [Suspect]
     Dosage: 10 MG 1X PER 1 DAY, ORAL
     Route: 048
  9. ATENOLOL [Concomitant]
  10. ALTACE [Concomitant]
  11. LIPITOR [Suspect]
  12. SEPTRA [Concomitant]
  13. LOSEC            (OMEPRAZOLE) [Concomitant]
  14. ATIVAN [Concomitant]
  15. HYDROCHLOROTHIAZIDE [Suspect]

REACTIONS (5)
  - DRUG INEFFECTIVE [None]
  - KIDNEY TRANSPLANT REJECTION [None]
  - NEPHROSCLEROSIS [None]
  - RENAL INTERSTITIAL FIBROSIS [None]
  - RENAL TUBULAR ATROPHY [None]
